FAERS Safety Report 8953816 (Version 1)
Quarter: 2012Q4

REPORT INFORMATION
  Report Type: 
  Country: IT (occurrence: IT)
  Receive Date: 20121206
  Receipt Date: 20121206
  Transmission Date: 20130627
  Serious: Yes (Other)
  Sender: FDA-Public Use
  Company Number: IT-BAXTER-2012BAX026197

PATIENT
  Sex: Female

DRUGS (4)
  1. ENDOXAN BAXTER [Suspect]
     Indication: GIANT CELL ARTERITIS
     Route: 048
  2. PREDNISONE [Suspect]
     Indication: GIANT CELL ARTERITIS
     Route: 065
  3. MESNA [Concomitant]
     Indication: PROPHYLAXIS
     Dosage: 1:1 RATIO WITH CYCLOPHOSPHAMIDE
     Route: 048
  4. ASPIRIN [Concomitant]
     Indication: ANTIPLATELET THERAPY
     Route: 065

REACTIONS (3)
  - Reticulocytopenia [Recovered/Resolved]
  - Oral candidiasis [Recovered/Resolved]
  - Oesophageal candidiasis [Recovered/Resolved]
